FAERS Safety Report 5336443-1 (Version None)
Quarter: 2007Q2

REPORT INFORMATION
  Report Type: 
  Country: None (occurrence: None)
  Receive Date: 20070523
  Receipt Date: 20070508
  Transmission Date: 20071010
  Serious: Yes (Hospitalization)
  Sender: FDA-Public Use
  Company Number: 8023069

PATIENT
  Age: 41 Year
  Sex: Female

DRUGS (10)
  1. KEPPRA [Suspect]
     Indication: CONVULSION
     Dosage: 500 MG 2/D PO
     Route: 048
     Dates: start: 20070404, end: 20070404
  2. DEXAMETHASONE 0.5MG TAB [Concomitant]
  3. ZANTAC [Concomitant]
  4. PHENYTOIN [Concomitant]
  5. SYNTHROID [Concomitant]
  6. TEMODAL [Concomitant]
  7. FRISIUM [Concomitant]
  8. KYTRIL [Concomitant]
  9. DOCUSATE SODIUM [Concomitant]
  10. SENOKOT [Concomitant]

REACTIONS (5)
  - ASTHENIA [None]
  - CONSTIPATION [None]
  - GLIOBLASTOMA [None]
  - HEADACHE [None]
  - SOMNOLENCE [None]
